FAERS Safety Report 13321819 (Version 1)
Quarter: 2017Q1

REPORT INFORMATION
  Report Type: Spontaneous
  Country: US (occurrence: US)
  Receive Date: 20170310
  Receipt Date: 20170310
  Transmission Date: 20170428
  Serious: No
  Sender: FDA-Public Use
  Company Number: None

PATIENT
  Age: 3 Year
  Sex: Male
  Weight: 13 kg

DRUGS (8)
  1. CYTARABINE. [Suspect]
     Active Substance: CYTARABINE
     Dates: end: 20170224
  2. DEXAMETHASONE. [Suspect]
     Active Substance: DEXAMETHASONE
     Dates: end: 20170205
  3. CYCLOPHOSPHAMIDE. [Suspect]
     Active Substance: CYCLOPHOSPHAMIDE
     Dates: end: 20170213
  4. DOXORUBICIN HYDROCHLORIDE. [Suspect]
     Active Substance: DOXORUBICIN HYDROCHLORIDE
     Dates: end: 20170130
  5. THIOGUANINE (6-TG) [Suspect]
     Active Substance: THIOGUANINE ANHYDROUS
     Dates: end: 20170220
  6. VINCRISTINE SULFATE. [Suspect]
     Active Substance: VINCRISTINE SULFATE
     Dates: end: 20170130
  7. METHOTREXATE. [Suspect]
     Active Substance: METHOTREXATE
     Dates: end: 20170220
  8. ONCASPAR [Suspect]
     Active Substance: PEGASPARGASE
     Dates: end: 20170119

REACTIONS (15)
  - Coagulopathy [None]
  - Gastrointestinal necrosis [None]
  - Disseminated intravascular coagulation [None]
  - Fungal skin infection [None]
  - Hypoxia [None]
  - Pancytopenia [None]
  - Weight increased [None]
  - Febrile neutropenia [None]
  - Clostridium colitis [None]
  - Abdominal distension [None]
  - Pleural effusion [None]
  - Fluid overload [None]
  - Colitis [None]
  - Petechiae [None]
  - Hepatic necrosis [None]

NARRATIVE: CASE EVENT DATE: 20170303
